FAERS Safety Report 20854290 (Version 7)
Quarter: 2022Q3

REPORT INFORMATION
  Report Type: Report from Study
  Country: US (occurrence: US)
  Receive Date: 20220520
  Receipt Date: 20220916
  Transmission Date: 20221026
  Serious: Yes (Hospitalization, Other)
  Sender: FDA-Public Use
  Company Number: US-NOVARTISPH-NVSC2022US113407

PATIENT
  Age: 41 Year
  Sex: Female

DRUGS (5)
  1. SECUKINUMAB [Suspect]
     Active Substance: SECUKINUMAB
     Indication: Hidradenitis
     Dosage: 300 MG, Q2W
     Route: 058
     Dates: start: 20211123, end: 20220412
  2. UNSPECIFIED INGREDIENT [Suspect]
     Active Substance: UNSPECIFIED INGREDIENT
     Indication: Hidradenitis
     Dosage: NO TREATMENT
     Route: 065
  3. HIBICLENS [Concomitant]
     Active Substance: CHLORHEXIDINE GLUCONATE
     Indication: Hidradenitis
     Dosage: UNK
     Route: 065
     Dates: start: 2012
  4. MUCINEX [Concomitant]
     Active Substance: GUAIFENESIN
     Indication: Cough
     Dosage: UNK
     Route: 065
     Dates: start: 20220513
  5. ARTIFICIAL TEARS [Concomitant]
     Active Substance: GLYCERIN\HYPROMELLOSES\POLYETHYLENE GLYCOL 400
     Indication: Bell^s palsy
     Dosage: UNK
     Route: 065
     Dates: start: 20220513

REACTIONS (1)
  - Meningitis viral [Recovered/Resolved]

NARRATIVE: CASE EVENT DATE: 20220513
